FAERS Safety Report 4918231-0 (Version None)
Quarter: 2006Q1

REPORT INFORMATION
  Report Type: 
  Country: None (occurrence: None)
  Receive Date: 20060215
  Receipt Date: 20060203
  Transmission Date: 20060701
  Serious: Yes (Hospitalization, Other)
  Sender: FDA-Public Use
  Company Number: 2006BH002500

PATIENT
  Sex: 0

DRUGS (4)
  1. CISPLATIN [Suspect]
     Indication: NEOPLASM MALIGNANT
     Dosage: 60 MG/M**2; 80 MG/M**2
  2. DEXAMETHASONE SODIUM PHOSPHATE [Suspect]
     Indication: NAUSEA
  3. PACLITAXEL [Suspect]
     Indication: NEOPLASM MALIGNANT
     Dosage: 135 MG/M**2; 175 MG/M**2
  4. FENRETINIDE [Suspect]
     Indication: NEOPLASM MALIGNANT
     Dosage: 1600 MG/M**2; 1800 MG/M**2

REACTIONS (1)
  - HYPERGLYCAEMIA [None]
